FAERS Safety Report 7233085-8 (Version None)
Quarter: 2011Q1

REPORT INFORMATION
  Report Type: 
  Country: None (occurrence: None)
  Receive Date: 20110119
  Receipt Date: 20110113
  Transmission Date: 20110831
  Serious: Yes (Other)
  Sender: FDA-Public Use
  Company Number: BR-PFIZER INC-2011002264

PATIENT
  Sex: Male

DRUGS (2)
  1. GENOTROPIN [Suspect]
     Dosage: 1.6 MG, 1X/DAY
     Route: 058
     Dates: start: 20101210, end: 20110103
  2. GENOTROPIN [Suspect]
     Dosage: 1.2 MG, 1X/DAY
     Route: 058
     Dates: start: 20110112

REACTIONS (3)
  - VOMITING [None]
  - VISUAL FIELD DEFECT [None]
  - HEADACHE [None]
